FAERS Safety Report 6343816-7 (Version None)
Quarter: 2009Q3

REPORT INFORMATION
  Report Type: 
  Country: None (occurrence: None)
  Receive Date: 20090908
  Receipt Date: 20090829
  Transmission Date: 20100115
  Serious: Yes (Other)
  Sender: FDA-Public Use
  Company Number: CA-ABBOTT-09P-028-0564002-00

PATIENT
  Sex: Female
  Weight: 74.002 kg

DRUGS (5)
  1. HUMIRA [Suspect]
     Indication: RHEUMATOID ARTHRITIS
     Route: 058
     Dates: start: 20061206
  2. HUMIRA [Suspect]
  3. METHOTREXATE [Concomitant]
     Indication: DRUG USE FOR UNKNOWN INDICATION
     Dosage: 10 TABLET (2.5 MILLIGRAM 1 IN 1 WEEKS)
  4. SYNTHROID [Concomitant]
     Indication: DRUG USE FOR UNKNOWN INDICATION
  5. HYDROCORTISONE ACETATE [Concomitant]
     Indication: FACE OEDEMA

REACTIONS (11)
  - BACK PAIN [None]
  - BLOOD IRON DECREASED [None]
  - CONDITION AGGRAVATED [None]
  - DIZZINESS [None]
  - FATIGUE [None]
  - GASTRIC DISORDER [None]
  - HAEMOGLOBIN DECREASED [None]
  - INJECTION SITE PAIN [None]
  - MUSCLE SPASMS [None]
  - PRURITUS [None]
  - SWELLING FACE [None]
